FAERS Safety Report 17096587 (Version 1)
Quarter: 2019Q4

REPORT INFORMATION
  Report Type: Spontaneous
  Country: IL (occurrence: IL)
  Receive Date: 20191202
  Receipt Date: 20191202
  Transmission Date: 20200122
  Serious: Yes (Life-Threatening, Hospitalization)
  Sender: FDA-Public Use
  Company Number: IL-ROCHE-2483699

PATIENT
  Age: 86 Year
  Sex: Male

DRUGS (3)
  1. EXFORGE [Concomitant]
     Active Substance: AMLODIPINE BESYLATE\VALSARTAN
     Indication: INSOMNIA
  2. ACTILYSE [Suspect]
     Active Substance: ALTEPLASE
     Indication: ISCHAEMIC STROKE
     Route: 065
     Dates: start: 20191119, end: 20191119
  3. BONDORMIN [Concomitant]
     Active Substance: BROTIZOLAM
     Indication: INSOMNIA

REACTIONS (2)
  - Basal ganglia haemorrhage [Recovering/Resolving]
  - Ischaemic stroke [Recovering/Resolving]

NARRATIVE: CASE EVENT DATE: 20191120
